FAERS Safety Report 15668538 (Version 3)
Quarter: 2019Q2

REPORT INFORMATION
  Report Type: Spontaneous
  Country: US (occurrence: US)
  Receive Date: 20181129
  Receipt Date: 20190512
  Transmission Date: 20190711
  Serious: No
  Sender: FDA-Public Use
  Company Number: US-ELI_LILLY_AND_COMPANY-US201811012486

PATIENT
  Sex: Female

DRUGS (5)
  1. TRULICITY [Suspect]
     Active Substance: DULAGLUTIDE
     Dosage: 0.75 MG, UNKNOWN
     Route: 058
  2. METFORMIN [Concomitant]
     Active Substance: METFORMIN HYDROCHLORIDE
     Indication: GLUCOSE TOLERANCE IMPAIRED
  3. TRULICITY [Suspect]
     Active Substance: DULAGLUTIDE
     Dosage: 0.75 MG, EVERY 10 DAYS
     Route: 058
  4. TRULICITY [Suspect]
     Active Substance: DULAGLUTIDE
     Indication: GLUCOSE TOLERANCE IMPAIRED
     Dosage: 0.75 MG, UNKNOWN
     Route: 058
     Dates: start: 201711
  5. TRULICITY [Suspect]
     Active Substance: DULAGLUTIDE
     Indication: GLYCOSYLATED HAEMOGLOBIN INCREASED
     Dosage: 0.75 MG, UNKNOWN
     Route: 058
     Dates: start: 20181119

REACTIONS (14)
  - Vomiting [Recovered/Resolved]
  - Glycosylated haemoglobin increased [Not Recovered/Not Resolved]
  - Malaise [Recovering/Resolving]
  - Abdominal discomfort [Not Recovered/Not Resolved]
  - Gastrooesophageal reflux disease [Not Recovered/Not Resolved]
  - Product prescribing error [Not Recovered/Not Resolved]
  - Cyst [Unknown]
  - Nausea [Recovered/Resolved]
  - Asthenia [Recovering/Resolving]
  - Dyspepsia [Not Recovered/Not Resolved]
  - Nausea [Not Recovered/Not Resolved]
  - Off label use [Not Recovered/Not Resolved]
  - Eructation [Not Recovered/Not Resolved]
  - Abdominal discomfort [Not Recovered/Not Resolved]

NARRATIVE: CASE EVENT DATE: 201711
